FAERS Safety Report 7485085-0 (Version None)
Quarter: 2011Q2

REPORT INFORMATION
  Report Type: 
  Country: None (occurrence: None)
  Receive Date: 20110517
  Receipt Date: 20101111
  Transmission Date: 20111010
  Serious: No
  Sender: FDA-Public Use
  Company Number: US-BAYER-2010-004286

PATIENT
  Sex: Female
  Weight: 63 kg

DRUGS (1)
  1. ALEVE (CAPLET) [Suspect]

REACTIONS (5)
  - DYSPHAGIA [None]
  - SWELLING FACE [None]
  - OEDEMA PERIPHERAL [None]
  - URTICARIA [None]
  - RASH [None]
